FAERS Safety Report 21679397 (Version 4)
Quarter: 2023Q1

REPORT INFORMATION
  Report Type: Spontaneous
  Country: US (occurrence: US)
  Receive Date: 20221205
  Receipt Date: 20230109
  Transmission Date: 20230418
  Serious: Yes (Other)
  Sender: FDA-Public Use
  Company Number: US-SUN PHARMACEUTICAL INDUSTRIES LTD-2022R1-365925

PATIENT
  Age: 24 Year
  Sex: Male

DRUGS (2)
  1. BUPRENORPHINE [Suspect]
     Active Substance: BUPRENORPHINE
     Indication: Pain
     Dosage: 8 MILLIGRAM, 1.5 TABLETS UNDER TONGUE PER DAY
     Route: 060
     Dates: start: 20221119
  2. BUPRENORPHINE [Suspect]
     Active Substance: BUPRENORPHINE
     Indication: Drug dependence

REACTIONS (12)
  - Burn oral cavity [Unknown]
  - Drug ineffective [Unknown]
  - Headache [Unknown]
  - Incorrect dose administered [Unknown]
  - Product solubility abnormal [Unknown]
  - Product use complaint [Unknown]
  - Pain in extremity [Unknown]
  - Product odour abnormal [Unknown]
  - Swollen tongue [Unknown]
  - Tongue disorder [Unknown]
  - Tongue ulceration [Unknown]
  - Withdrawal syndrome [Unknown]

NARRATIVE: CASE EVENT DATE: 20221120
